FAERS Safety Report 6807557-1 (Version None)
Quarter: 2010Q2

REPORT INFORMATION
  Report Type: 
  Country: None (occurrence: None)
  Receive Date: 20100625
  Receipt Date: 20100611
  Transmission Date: 20101027
  Serious: Yes (Death, Other)
  Sender: FDA-Public Use
  Company Number: A-NJ2010-37328

PATIENT
  Age: 29 Year
  Sex: Female
  Weight: 53 kg

DRUGS (5)
  1. TRACLEER [Suspect]
     Indication: PULMONARY ARTERIAL HYPERTENSION
     Dosage: 125 MG, BID, ORAL
     Route: 048
     Dates: start: 20050101, end: 20100611
  2. FLOLAN [Concomitant]
  3. REVATIO (SIODENAFIL CIRTRATE) [Concomitant]
  4. COUMADIN [Concomitant]
  5. NUVARING [Concomitant]

REACTIONS (4)
  - ABORTION SPONTANEOUS [None]
  - DEATH NEONATAL [None]
  - DRUG EXPOSURE DURING PREGNANCY [None]
  - PREGNANCY [None]
